FAERS Safety Report 4283797-3 (Version None)
Quarter: 2004Q1

REPORT INFORMATION
  Report Type: 
  Country: None (occurrence: None)
  Receive Date: 20040115
  Receipt Date: 20030425
  Transmission Date: 20041129
  Serious: Yes (Hospitalization, Other)
  Sender: FDA-Public Use
  Company Number: NSADSS2003020013

PATIENT
  Age: 52 Year
  Sex: Female
  Weight: 48.0813 kg

DRUGS (3)
  1. DOXIL [Suspect]
     Indication: BREAST CANCER FEMALE
     Dosage: 70 MG, INTRAVENOUS DRIP
     Route: 041
     Dates: start: 20030425, end: 20030425
  2. ANZEMET (DOLASETRON MESILATE) [Concomitant]
  3. DECADRON [Concomitant]

REACTIONS (6)
  - CHEST PAIN [None]
  - DYSPNOEA [None]
  - HYPERSENSITIVITY [None]
  - HYPOXIA [None]
  - PRURITUS [None]
  - TONGUE OEDEMA [None]
